FAERS Safety Report 5449738-8 (Version None)
Quarter: 2007Q3

REPORT INFORMATION
  Report Type: 
  Country: None (occurrence: None)
  Receive Date: 20070907
  Receipt Date: 20070907
  Transmission Date: 20080115
  Serious: Yes (Other)
  Sender: FDA-Public Use
  Company Number: None

PATIENT
  Sex: Male
  Weight: 70.7 kg

DRUGS (1)
  1. METHOTREXATE [Suspect]
     Indication: CHEMOTHERAPY
     Dosage: IV
     Route: 042
     Dates: start: 20070824, end: 20070827

REACTIONS (2)
  - BLOOD CREATININE INCREASED [None]
  - DRUG LEVEL INCREASED [None]
